FAERS Safety Report 10668560 (Version 2)
Quarter: 2015Q1

REPORT INFORMATION
  Report Type: Spontaneous
  Country: US (occurrence: None)
  Receive Date: 20141217
  Receipt Date: 20150319
  Transmission Date: 20150720
  Serious: No
  Sender: FDA-Public Use
  Company Number: 2014CT000191

PATIENT
  Age: 64 Year
  Sex: Female
  Weight: 55.34 kg

DRUGS (1)
  1. KORLYM [Suspect]
     Active Substance: MIFEPRISTONE
     Indication: CUSHING^S SYNDROME
     Route: 048
     Dates: start: 2014

REACTIONS (10)
  - Arthralgia [None]
  - Tinnitus [None]
  - Hypertension [None]
  - Decreased appetite [None]
  - Oedema peripheral [None]
  - Nausea [None]
  - Fatigue [None]
  - Thirst [None]
  - Renin decreased [None]
  - Nasopharyngitis [None]

NARRATIVE: CASE EVENT DATE: 201410
